FAERS Safety Report 9275571 (Version 1)
Quarter: 2013Q2

REPORT INFORMATION
  Report Type: Spontaneous
  Country: US (occurrence: None)
  Receive Date: 20130502
  Receipt Date: 20130502
  Transmission Date: 20140414
  Serious: No
  Sender: FDA-Public Use
  Company Number: None

PATIENT
  Sex: 0

DRUGS (1)
  1. BUPRENORPHINE HCL AND NALOXONE HCL [Suspect]
     Dates: start: 20120301, end: 20130401

REACTIONS (1)
  - No adverse event [None]
